FAERS Safety Report 14242681 (Version 1)
Quarter: 2017Q4

REPORT INFORMATION
  Report Type: Spontaneous
  Country: US (occurrence: US)
  Receive Date: 20171201
  Receipt Date: 20171201
  Transmission Date: 20180321
  Serious: Yes (Hospitalization, Other)
  Sender: FDA-Public Use
  Company Number: US-ELI_LILLY_AND_COMPANY-US201711012431

PATIENT
  Age: 74 Year
  Sex: Female

DRUGS (6)
  1. SORAFENIB [Suspect]
     Active Substance: SORAFENIB
     Indication: NON-SMALL CELL LUNG CANCER RECURRENT
  2. PEMETREXED. [Suspect]
     Active Substance: PEMETREXED
     Indication: NON-SMALL CELL LUNG CANCER RECURRENT
     Dosage: UNK, UNKNOWN
     Route: 065
     Dates: start: 201411, end: 201501
  3. CARBOPLATIN. [Suspect]
     Active Substance: CARBOPLATIN
     Indication: NON-SMALL CELL LUNG CANCER RECURRENT
  4. PEMETREXED. [Suspect]
     Active Substance: PEMETREXED
     Indication: LUNG CANCER METASTATIC
     Dosage: UNK UNK, UNKNOWN
     Route: 065
     Dates: start: 201002, end: 201207
  5. CARBOPLATIN. [Suspect]
     Active Substance: CARBOPLATIN
     Indication: LUNG CANCER METASTATIC
     Dosage: UNK UNK, UNKNOWN
     Route: 065
     Dates: start: 201411, end: 201501
  6. SORAFENIB [Suspect]
     Active Substance: SORAFENIB
     Indication: LUNG CANCER METASTATIC
     Dosage: UNK, UNKNOWN
     Route: 065
     Dates: start: 201002, end: 201207

REACTIONS (2)
  - Drug intolerance [Unknown]
  - Unevaluable event [Unknown]
